FAERS Safety Report 24231150 (Version 2)
Quarter: 2025Q1

REPORT INFORMATION
  Report Type: Spontaneous
  Country: DE (occurrence: DE)
  Receive Date: 20240821
  Receipt Date: 20250104
  Transmission Date: 20250408
  Serious: Yes (Other)
  Sender: AUROBINDO
  Company Number: DE-ALKEM LABORATORIES LIMITED-DE-ALKEM-2024-14655

PATIENT
  Age: 23 Year
  Sex: Male

DRUGS (3)
  1. PREGABALIN [Suspect]
     Active Substance: PREGABALIN
     Indication: Product used for unknown indication
     Route: 065
  2. TENAMFETAMINE [Suspect]
     Active Substance: TENAMFETAMINE
     Indication: Product used for unknown indication
     Route: 065
  3. MIDOMAFETAMINE [Suspect]
     Active Substance: MIDOMAFETAMINE
     Indication: Product used for unknown indication
     Route: 065

REACTIONS (6)
  - Schizophrenia [Unknown]
  - Substance abuse [Unknown]
  - Abnormal behaviour [Unknown]
  - Aggression [Unknown]
  - Restlessness [Unknown]
  - Intentional product misuse [Unknown]
